FAERS Safety Report 7365850-0 (Version None)
Quarter: 2011Q1

REPORT INFORMATION
  Report Type: 
  Country: None (occurrence: None)
  Receive Date: 20110316
  Receipt Date: 20110316
  Transmission Date: 20110831
  Serious: Yes (Hospitalization)
  Sender: FDA-Public Use
  Company Number: None

PATIENT
  Age: 51 Year
  Sex: Female
  Weight: 69.4003 kg

DRUGS (1)
  1. LEVAQUIN [Suspect]
     Indication: STREPTOCOCCAL INFECTION
     Dosage: 750 MG ONCE DAILY PO
     Route: 048
     Dates: start: 20101202, end: 20101209

REACTIONS (13)
  - IMPAIRED WORK ABILITY [None]
  - BONE PAIN [None]
  - JOINT SWELLING [None]
  - GAIT DISTURBANCE [None]
  - ARTHRALGIA [None]
  - DIZZINESS [None]
  - TENDON PAIN [None]
  - MUSCULOSKELETAL CHEST PAIN [None]
  - IMPAIRED DRIVING ABILITY [None]
  - DYSPNOEA [None]
  - MUSCLE SPASMS [None]
  - DYSSTASIA [None]
  - IMPAIRED SELF-CARE [None]
